APPROVED DRUG PRODUCT: BUPROPION HYDROCHLORIDE
Active Ingredient: BUPROPION HYDROCHLORIDE
Strength: 75MG
Dosage Form/Route: TABLET;ORAL
Application: A076143 | Product #001 | TE Code: AB
Applicant: APOTEX INC
Approved: Jan 17, 2006 | RLD: No | RS: No | Type: RX